FAERS Safety Report 15697861 (Version 2)
Quarter: 2018Q4

REPORT INFORMATION
  Report Type: Spontaneous
  Country: US (occurrence: US)
  Receive Date: 20181207
  Receipt Date: 20181212
  Transmission Date: 20190205
  Serious: No
  Sender: FDA-Public Use
  Company Number: US-PFIZER INC-2018499623

PATIENT
  Age: 63 Year
  Sex: Female
  Weight: 57.61 kg

DRUGS (3)
  1. THEANINE [Interacting]
     Active Substance: THEANINE
     Indication: SLEEP DISORDER
     Dosage: 2 DF, 1X/DAY
     Route: 048
  2. PRISTIQ EXTENDED-RELEASE [Interacting]
     Active Substance: DESVENLAFAXINE SUCCINATE
     Indication: DEPRESSION
  3. PRISTIQ EXTENDED-RELEASE [Suspect]
     Active Substance: DESVENLAFAXINE SUCCINATE
     Indication: ANXIETY
     Dosage: 100 MG, 1X/DAY (IN THE EVENING)
     Route: 048

REACTIONS (7)
  - Insomnia [Unknown]
  - Drug interaction [Unknown]
  - Post-traumatic stress disorder [Unknown]
  - Feeling abnormal [Unknown]
  - Electroencephalogram abnormal [Unknown]
  - Adrenal disorder [Unknown]
  - Product dose omission [Unknown]
